FAERS Safety Report 7134926-5 (Version None)
Quarter: 2010Q4

REPORT INFORMATION
  Report Type: 
  Country: None (occurrence: None)
  Receive Date: 20101203
  Receipt Date: 20101124
  Transmission Date: 20110411
  Serious: Yes (Death, Hospitalization)
  Sender: FDA-Public Use
  Company Number: CA-JNJFOC-20101006862

PATIENT
  Sex: Male
  Weight: 99.7 kg

DRUGS (3)
  1. REMICADE [Suspect]
     Indication: SARCOIDOSIS
     Route: 042
  2. REMICADE [Suspect]
     Route: 042
  3. WARFARIN SODIUM [Concomitant]

REACTIONS (9)
  - CLOSTRIDIUM DIFFICILE COLITIS [None]
  - CULTURE URINE POSITIVE [None]
  - KIDNEY INFECTION [None]
  - LEUKOENCEPHALOPATHY [None]
  - NEURODEGENERATIVE DISORDER [None]
  - PNEUMONIA ASPIRATION [None]
  - PULMONARY SEPSIS [None]
  - PYREXIA [None]
  - SARCOIDOSIS [None]
